FAERS Safety Report 5869315-4 (Version None)
Quarter: 2008Q3

REPORT INFORMATION
  Report Type: 
  Country: None (occurrence: None)
  Receive Date: 20080828
  Receipt Date: 20080819
  Transmission Date: 20090109
  Serious: Yes (Life-Threatening, Hospitalization)
  Sender: FDA-Public Use
  Company Number: CHNY2008JP03143

PATIENT
  Age: 66 Year
  Sex: Female

DRUGS (16)
  1. NICOTINE [Suspect]
     Indication: SMOKING CESSATION THERAPY
     Dosage: 14 MG, QD, TRANSDERMAL
     Route: 062
     Dates: start: 20080710, end: 20080713
  2. ISOSORBIDE MONONITRATE [Concomitant]
  3. AMOBAN (ZOPICLONE) [Concomitant]
  4. MOSAPRIDE CITRATE (MOSAPRIDE CITRATE) [Concomitant]
  5. SENNOSIDE (SENNOSIDE A+B CALCIUM) [Concomitant]
  6. TAVEGYL/SCH/ (CLEMASTINE FUMARATE) [Concomitant]
  7. DEPAS (ETIZOLAM) [Concomitant]
  8. TOLEDOMIN (MILNACIPRAN HYDROCHLORIDE) [Concomitant]
  9. NITROPEN (GLYCERYL TRINITRATE) [Concomitant]
  10. ASPIRIN [Concomitant]
  11. ROHYPNOL (FLUNITRAZEPAM) [Concomitant]
  12. ISOSORBIDE DINITRATE [Concomitant]
  13. LIVALO KOWA (ITAVASTATIN CALCIUM) [Concomitant]
  14. BROTIZOLAM (BROTIZOLAM) [Concomitant]
  15. LOXONIN (LOXOPROFEN SODIUM) [Concomitant]
  16. MYONAL (EPERISONE HYDROCHLORIDE) [Concomitant]

REACTIONS (3)
  - GENERAL PHYSICAL HEALTH DETERIORATION [None]
  - LOSS OF CONSCIOUSNESS [None]
  - MYOCARDIAL INFARCTION [None]
